FAERS Safety Report 7795301-3 (Version None)
Quarter: 2011Q4

REPORT INFORMATION
  Report Type: 
  Country: None (occurrence: None)
  Receive Date: 20111004
  Receipt Date: 20110926
  Transmission Date: 20120403
  Serious: Yes (Hospitalization)
  Sender: FDA-Public Use
  Company Number: PHHY2011US63700

PATIENT
  Age: 41 Year
  Sex: Male

DRUGS (2)
  1. PULMOZYME [Concomitant]
     Dosage: 2.5 MG, DAILY
  2. TOBI [Suspect]
     Dosage: 300 MG, TWICE A DAY ON A CYCLE OF 28 DAYS ON AND 28 DAYS OFF
     Dates: start: 20101026

REACTIONS (2)
  - UPPER RESPIRATORY TRACT INFECTION [None]
  - LUNG INFECTION [None]
